FAERS Safety Report 5012412-6 (Version None)
Quarter: 2006Q2

REPORT INFORMATION
  Report Type: 
  Country: None (occurrence: None)
  Receive Date: 20060411
  Receipt Date: 20060105
  Transmission Date: 20061013
  Serious: No
  Sender: FDA-Public Use
  Company Number: 2005S1000250

PATIENT
  Sex: Female

DRUGS (1)
  1. CUBICIN [Suspect]
     Indication: OSTEOMYELITIS
     Dosage: 350 MG;Q24H;IV
     Route: 042
     Dates: start: 20050206, end: 20050322

REACTIONS (1)
  - LIVER FUNCTION TEST ABNORMAL [None]
